FAERS Safety Report 5189755-9 (Version None)
Quarter: 2006Q4

REPORT INFORMATION
  Report Type: 
  Country: None (occurrence: None)
  Receive Date: 20061218
  Receipt Date: 20061208
  Transmission Date: 20070319
  Serious: Yes (Death)
  Sender: FDA-Public Use
  Company Number: 149800USA

PATIENT
  Sex: Female

DRUGS (2)
  1. AZILECT [Suspect]
     Dosage: ORAL
     Route: 048
  2. CIPROFLOXACIN [Concomitant]

REACTIONS (3)
  - CONFUSIONAL STATE [None]
  - HYPOTENSION [None]
  - PNEUMONIA ASPIRATION [None]
